FAERS Safety Report 4780498-X (Version None)
Quarter: 2005Q3

REPORT INFORMATION
  Report Type: 
  Country: None (occurrence: None)
  Receive Date: 20050926
  Receipt Date: 20050919
  Transmission Date: 20060218
  Serious: Yes (Other)
  Sender: FDA-Public Use
  Company Number: 2005-09-1105

PATIENT
  Age: 20 Year
  Sex: Male

DRUGS (1)
  1. ALBUTEROL [Suspect]
     Dosage: ORAL AER INH
     Route: 055

REACTIONS (2)
  - CATARACT [None]
  - EYE DISORDER [None]
